FAERS Safety Report 7338246-5 (Version None)
Quarter: 2011Q1

REPORT INFORMATION
  Report Type: 
  Country: None (occurrence: None)
  Receive Date: 20110308
  Receipt Date: 20110301
  Transmission Date: 20110831
  Serious: Yes (Hospitalization)
  Sender: FDA-Public Use
  Company Number: PHHY2011US17058

PATIENT
  Sex: Male

DRUGS (3)
  1. HYPERTONIC SOLUTIONS [Concomitant]
  2. TOBI [Suspect]
     Indication: CYSTIC FIBROSIS
     Dosage: 300 MG, BID
     Dates: start: 20100101
  3. PULMOZYME [Concomitant]

REACTIONS (1)
  - PNEUMONIA [None]
